FAERS Safety Report 6213004-3 (Version None)
Quarter: 2009Q2

REPORT INFORMATION
  Report Type: 
  Country: None (occurrence: None)
  Receive Date: 20090528
  Receipt Date: 20080609
  Transmission Date: 20091009
  Serious: Yes (Other)
  Sender: FDA-Public Use
  Company Number: 169195USA

PATIENT
  Age: 37 Year
  Sex: Female

DRUGS (2)
  1. CEPHALEXIN [Suspect]
     Dosage: (500 MG), ORAL
     Route: 048
     Dates: start: 20080319, end: 20080321
  2. HYDROCODONE [Concomitant]

REACTIONS (8)
  - HIV INFECTION [None]
  - INSOMNIA [None]
  - PRURITUS [None]
  - PRURITUS GENERALISED [None]
  - SKIN REACTION [None]
  - SWOLLEN TONGUE [None]
  - URTICARIA [None]
  - WHEEZING [None]
